FAERS Safety Report 9853888 (Version 2)
Quarter: 2014Q1

REPORT INFORMATION
  Report Type: Report from Study
  Country: US (occurrence: US)
  Receive Date: 20140129
  Receipt Date: 20140206
  Transmission Date: 20141002
  Serious: Yes (Other)
  Sender: FDA-Public Use
  Company Number: US-PFIZER INC-2014022978

PATIENT
  Age: 13 Year
  Sex: Male

DRUGS (3)
  1. DOXORUBICIN HCL [Suspect]
     Indication: NON-HODGKIN^S LYMPHOMA
     Dosage: 75 MG/M2, CYCLIC
  2. PREDNISONE [Interacting]
     Indication: NON-HODGKIN^S LYMPHOMA
     Dosage: 40 MG/M2, DAILY
  3. VINCRISTINE [Interacting]
     Indication: NON-HODGKIN^S LYMPHOMA
     Dosage: 1.5 MG/M2, WEEKLY

REACTIONS (2)
  - Radiation interaction [Unknown]
  - Oesophagitis [Unknown]
